FAERS Safety Report 23070399 (Version 2)
Quarter: 2023Q4

REPORT INFORMATION
  Report Type: Spontaneous
  Country: BG (occurrence: BG)
  Receive Date: 20231016
  Receipt Date: 20231024
  Transmission Date: 20240110
  Serious: Yes (Hospitalization, Other)
  Sender: FDA-Public Use
  Company Number: BG-PFIZER INC-202300320961

PATIENT
  Age: 8 Year
  Sex: Male

DRUGS (1)
  1. GENOTROPIN [Suspect]
     Active Substance: SOMATROPIN
     Indication: Growth hormone deficiency
     Dosage: UNK (0,07 AS REPORTED)
     Dates: start: 20230217, end: 20231002

REACTIONS (3)
  - Papilloedema [Unknown]
  - Diabetic retinopathy [Unknown]
  - Retinal injury [Unknown]

NARRATIVE: CASE EVENT DATE: 20230901
